FAERS Safety Report 8222484-3 (Version None)
Quarter: 2012Q1

REPORT INFORMATION
  Report Type: 
  Country: None (occurrence: None)
  Receive Date: 20120320
  Receipt Date: 20120312
  Transmission Date: 20120608
  Serious: Yes (Other)
  Sender: FDA-Public Use
  Company Number: PHHY2012DE021878

PATIENT
  Sex: Female

DRUGS (6)
  1. METOPROLOL TARTRATE AND HYDROCHLOROTHIAZIDE [Concomitant]
  2. RASILEZ [Suspect]
     Dosage: 1 DF, QD
     Route: 048
     Dates: start: 20110101
  3. RAMIPRIL [Concomitant]
  4. RAMIPRIL [Concomitant]
  5. SIMVABETA [Concomitant]
  6. CLOPIDOGREL BISULFATE [Concomitant]
     Dates: start: 20111201

REACTIONS (6)
  - ABDOMINAL DISCOMFORT [None]
  - PROTEIN URINE [None]
  - GASTRIC DISORDER [None]
  - PERIPHERAL COLDNESS [None]
  - HEADACHE [None]
  - CORONARY ARTERY STENOSIS [None]
